FAERS Safety Report 15209467 (Version 1)
Quarter: 2018Q3

REPORT INFORMATION
  Report Type: Spontaneous
  Country: CA (occurrence: CA)
  Receive Date: 20180727
  Receipt Date: 20180727
  Transmission Date: 20181010
  Serious: Yes (Other)
  Sender: FDA-Public Use
  Company Number: CA-ANIPHARMA-2018-CA-000652

PATIENT

DRUGS (16)
  1. DIMENHYDRINATE. [Suspect]
     Active Substance: DIMENHYDRINATE
     Route: 065
  2. BETAHISTINE [Suspect]
     Active Substance: BETAHISTINE
     Dosage: 24 MG QD
     Route: 065
  3. CETIRIZINE [Suspect]
     Active Substance: CETIRIZINE HYDROCHLORIDE
     Dosage: 20 MG QD
     Route: 065
  4. PANTOPRAZOLE [Suspect]
     Active Substance: PANTOPRAZOLE
     Dosage: 40 MG QD
     Route: 065
  5. CANDESARTAN CILEXETIL. [Suspect]
     Active Substance: CANDESARTAN CILEXETIL
     Indication: HYPERTENSION
     Dosage: 4 MG QD
     Route: 065
  6. METOCLOPRAMIDE. [Suspect]
     Active Substance: METOCLOPRAMIDE
     Dosage: 30 MG QD
     Route: 065
  7. TRAZODONE [Suspect]
     Active Substance: TRAZODONE HYDROCHLORIDE
     Dosage: 50 MG QD
     Route: 048
  8. ERGOCALCIFEROL. [Suspect]
     Active Substance: ERGOCALCIFEROL
     Dosage: EVERY DAY
     Route: 065
  9. RISEDRONATE SODIUM. [Suspect]
     Active Substance: RISEDRONATE SODIUM
     Route: 065
  10. CITALOPRAM [Suspect]
     Active Substance: CITALOPRAM HYDROBROMIDE
     Dosage: 5 MG QD
     Route: 065
  11. CARBIDOPA+LEVODOPA [Suspect]
     Active Substance: CARBIDOPA\LEVODOPA
     Dosage: THREE TIMES A DAY
     Route: 065
  12. TIMOLOL. [Suspect]
     Active Substance: TIMOLOL
     Dosage: TWO TIMES A DAY
  13. ROSUVASTATIN. [Suspect]
     Active Substance: ROSUVASTATIN
     Dosage: 20 MG QD
     Route: 065
  14. MIRTAZAPINE. [Suspect]
     Active Substance: MIRTAZAPINE
     Dosage: 7.5 MG QD
     Route: 065
  15. LEVOTHYROXINE SODIUM. [Suspect]
     Active Substance: LEVOTHYROXINE SODIUM
     Dosage: .05 MG QD
     Route: 065
  16. BISOPROLOL [Suspect]
     Active Substance: BISOPROLOL
     Dosage: 1.25 MG QD
     Route: 065

REACTIONS (20)
  - Fatigue [Unknown]
  - Hypotension [Unknown]
  - Vitamin B12 decreased [Unknown]
  - Condition aggravated [Unknown]
  - Eye pruritus [Unknown]
  - Hypersensitivity [Unknown]
  - Loss of personal independence in daily activities [Unknown]
  - Nausea [Unknown]
  - Vomiting [Unknown]
  - Lacrimation increased [Unknown]
  - Parkinson^s disease [Unknown]
  - Dry mouth [Unknown]
  - Fall [Unknown]
  - Constipation [Unknown]
  - Vertigo [Unknown]
  - Abdominal distension [Unknown]
  - Dizziness [Unknown]
  - Drug ineffective [Unknown]
  - Decreased appetite [Unknown]
  - Depressed mood [Unknown]
